FAERS Safety Report 4275454-4 (Version None)
Quarter: 2004Q1

REPORT INFORMATION
  Report Type: 
  Country: None (occurrence: None)
  Receive Date: 20040121
  Receipt Date: 20031119
  Transmission Date: 20041129
  Serious: Yes (Hospitalization, Other)
  Sender: FDA-Public Use
  Company Number: 200320014US

PATIENT
  Sex: Female

DRUGS (5)
  1. LOVENOX [Suspect]
     Indication: ANTITHROMBIN III DEFICIENCY
     Route: 058
     Dates: start: 20030227
  2. INSULIN [Concomitant]
     Indication: DIABETES MELLITUS
     Dosage: DOSE UNIT: UNITS
     Dates: start: 20030227
  3. LABETALOL HCL [Concomitant]
     Indication: HYPERTENSION
     Dates: start: 20030127
  4. ALDOMET [Concomitant]
     Route: 048
     Dates: start: 20030206
  5. NIFEDIPINE [Concomitant]
     Route: 048
     Dates: start: 20030206

REACTIONS (6)
  - COMPLICATIONS OF MATERNAL EXPOSURE TO THERAPEUTIC DRUGS [None]
  - CONDITION AGGRAVATED [None]
  - DIABETIC NEPHROPATHY [None]
  - MATERNAL CONDITION AFFECTING FOETUS [None]
  - PRE-ECLAMPSIA [None]
  - PREMATURE BABY [None]
